FAERS Safety Report 8760967 (Version 2)
Quarter: 2012Q4

REPORT INFORMATION
  Report Type: 
  Country: BR (occurrence: BR)
  Receive Date: 20120830
  Receipt Date: 20120913
  Transmission Date: 20130627
  Serious: Yes (Death, Hospitalization)
  Sender: FDA-Public Use
  Company Number: BR-B.I. PHARMACEUTICALS,INC./RIDGEFIELD-2012-BR-00974BR

PATIENT
  Sex: Male

DRUGS (3)
  1. SECOTEX ADV [Suspect]
     Indication: BENIGN PROSTATIC HYPERPLASIA
     Dosage: 0.4 mg
     Route: 048
     Dates: start: 201206, end: 20120815
  2. CEBRALAT [Concomitant]
     Indication: CEREBROVASCULAR ACCIDENT
     Dosage: 50 mg
     Route: 048
  3. GLIMEPIRIDA [Concomitant]
     Indication: DIABETES MELLITUS
     Dosage: 2 mg
     Route: 048

REACTIONS (2)
  - Bronchopneumonia [Fatal]
  - Cardiac failure [Fatal]
